FAERS Safety Report 8373419-4 (Version None)
Quarter: 2012Q2

REPORT INFORMATION
  Report Type: 
  Country: None (occurrence: None)
  Receive Date: 20120521
  Receipt Date: 20111109
  Transmission Date: 20120825
  Serious: Yes (Other)
  Sender: FDA-Public Use
  Company Number: US-TEVA-2011005756

PATIENT
  Age: 71 Year
  Sex: Female
  Weight: 106 kg

DRUGS (18)
  1. TEMSIROLIMUS [Suspect]
     Indication: B-CELL LYMPHOMA
     Dates: start: 20110512
  2. ACETAMINOPHEN [Concomitant]
     Dates: start: 20110510
  3. LOPEDIUM [Concomitant]
     Dates: start: 20110518
  4. DIMETINDENE MALEATE [Concomitant]
     Dates: start: 20110512
  5. BENDAMUSTINE HYDROCHLORIDE [Suspect]
     Indication: B-CELL LYMPHOMA
     Route: 042
     Dates: start: 20110511
  6. DIMENHYDRINATE [Concomitant]
     Dates: start: 20110615
  7. SIMVASTATIN [Concomitant]
     Dates: start: 20101001
  8. ALLOPURINOL [Concomitant]
     Dates: start: 20110510
  9. CEFATRIZINE PROPYLENEGLYCOL SULFATE [Concomitant]
     Dates: start: 20110510
  10. PANTOPRAZOLE [Concomitant]
     Dates: start: 20110518
  11. LEVOTHYROXINE SODIUM [Concomitant]
     Dates: start: 20090101
  12. AMLODIPINE BESYLATE [Concomitant]
     Dates: start: 20100601
  13. ENALAPRIL MALEATE [Concomitant]
     Dates: start: 20080101
  14. RITUXIMAB [Suspect]
     Indication: B-CELL LYMPHOMA
     Dates: start: 20110520
  15. TORSEMIDE [Concomitant]
     Dates: start: 20090101
  16. METOCLOPRAMIDE [Concomitant]
     Dates: start: 20110518
  17. METOPROLOL [Concomitant]
     Dates: start: 20080101
  18. GRANISETRON HYDROCHLORIDE [Concomitant]
     Dates: start: 20110511

REACTIONS (1)
  - LYMPHOPENIA [None]
